FAERS Safety Report 6390874-X (Version None)
Quarter: 2009Q4

REPORT INFORMATION
  Report Type: 
  Country: None (occurrence: None)
  Receive Date: 20091006
  Receipt Date: 20090922
  Transmission Date: 20100525
  Serious: Yes (Life-Threatening, Hospitalization)
  Sender: FDA-Public Use
  Company Number: DE-GENENTECH-291282

PATIENT
  Sex: Female

DRUGS (8)
  1. RITUXIMAB [Suspect]
     Indication: MALIGNANT LYMPHOID NEOPLASM
     Dosage: 375 MG/M2, UNK
     Route: 065
  2. DOXORUBICIN HCL [Suspect]
     Indication: MALIGNANT LYMPHOID NEOPLASM
     Dosage: 35 MG/M2, UNK
     Route: 065
  3. BLEOMYCIN SULFATE [Suspect]
     Indication: MALIGNANT LYMPHOID NEOPLASM
     Dosage: 10 MG/M2, UNK
     Route: 065
  4. PROCARBAZINE [Suspect]
     Indication: MALIGNANT LYMPHOID NEOPLASM
     Dosage: 100 MG/M2, UNK
     Route: 065
  5. VINCRISTINE [Suspect]
     Indication: MALIGNANT LYMPHOID NEOPLASM
     Dosage: 2 MG, UNK
     Route: 065
  6. ETOPOSIDE [Suspect]
     Indication: MALIGNANT LYMPHOID NEOPLASM
     Dosage: 150 MG/M2, UNK
     Route: 065
  7. CYCLOPHOSPHAMIDE [Suspect]
     Indication: MALIGNANT LYMPHOID NEOPLASM
     Dosage: 950 MG/M2, UNK
     Route: 065
  8. PREDNISONE [Suspect]
     Indication: MALIGNANT LYMPHOID NEOPLASM
     Dosage: 40 MG/M2, UNK
     Route: 065

REACTIONS (1)
  - PULMONARY EMBOLISM [None]
